FAERS Safety Report 9781454 (Version 3)
Quarter: 2014Q1

REPORT INFORMATION
  Report Type: Spontaneous
  Country: US (occurrence: US)
  Receive Date: 20131224
  Receipt Date: 20140224
  Transmission Date: 20141002
  Serious: No
  Sender: FDA-Public Use
  Company Number: US-BIOGENIDEC-2013BI078874

PATIENT
  Sex: Female
  Weight: 58 kg

DRUGS (17)
  1. TECFIDERA [Suspect]
     Indication: MULTIPLE SCLEROSIS
     Route: 048
  2. TECFIDERA [Suspect]
     Indication: MULTIPLE SCLEROSIS
     Route: 048
  3. TECFIDERA [Suspect]
     Indication: MULTIPLE SCLEROSIS
     Route: 048
  4. ALBUTEROL [Concomitant]
  5. CIPRO [Concomitant]
  6. DIGESTIVECAP PROBIOTIC [Concomitant]
  7. VITAMIN C [Concomitant]
  8. CALCIUM 500 [Concomitant]
  9. GLUCOS/CHOND [Concomitant]
  10. FISH OIL [Concomitant]
  11. VITAMIN D [Concomitant]
  12. DIAZEPAM [Concomitant]
  13. TRAMADOL HCL [Concomitant]
  14. BACLOFEN [Concomitant]
  15. LORAZEPAM [Concomitant]
  16. ADVIL [Concomitant]
  17. TIZANIDINE [Concomitant]

REACTIONS (15)
  - Dry skin [Unknown]
  - Intentional drug misuse [Not Recovered/Not Resolved]
  - Sneezing [Unknown]
  - Arthropathy [Unknown]
  - Back disorder [Unknown]
  - Skin lesion [Unknown]
  - Dry mouth [Unknown]
  - Vomiting [Unknown]
  - Retching [Unknown]
  - Nausea [Not Recovered/Not Resolved]
  - Flushing [Not Recovered/Not Resolved]
  - Rash [Unknown]
  - Diarrhoea [Not Recovered/Not Resolved]
  - Erythema [Unknown]
  - Abdominal discomfort [Unknown]
